FAERS Safety Report 6696505-3 (Version None)
Quarter: 2010Q2

REPORT INFORMATION
  Report Type: 
  Country: None (occurrence: None)
  Receive Date: 20100426
  Receipt Date: 20100423
  Transmission Date: 20101027
  Serious: Yes (Hospitalization, Other)
  Sender: FDA-Public Use
  Company Number: US-ROXANE LABORATORIES, INC.-2010-RO-00458RO

PATIENT
  Age: 40 Year
  Sex: Female

DRUGS (9)
  1. METHOTREXATE [Suspect]
     Indication: PSORIASIS
  2. METHOTREXATE [Suspect]
     Indication: PSORIATIC ARTHROPATHY
  3. PREDNISONE [Suspect]
     Indication: PSORIASIS
  4. PREDNISONE [Suspect]
     Indication: PSORIATIC ARTHROPATHY
  5. INFLIXIMAB [Suspect]
     Indication: PSORIASIS
  6. INFLIXIMAB [Suspect]
     Indication: PSORIATIC ARTHROPATHY
  7. MOXIFLOXACIN HCL [Suspect]
  8. AMPHOTERICIN B [Concomitant]
     Indication: HISTOPLASMOSIS
  9. FLUCONAZOLE [Concomitant]
     Indication: HISTOPLASMOSIS

REACTIONS (9)
  - ATELECTASIS [None]
  - HISTOPLASMOSIS [None]
  - HYPERCALCAEMIA [None]
  - HYPOCHROMIC ANAEMIA [None]
  - LEUKOPENIA [None]
  - LYMPHADENOPATHY [None]
  - PLEURAL EFFUSION [None]
  - POLYCHROMASIA [None]
  - RENAL FAILURE [None]
